FAERS Safety Report 7549037-4 (Version None)
Quarter: 2011Q2

REPORT INFORMATION
  Report Type: 
  Country: None (occurrence: None)
  Receive Date: 20110615
  Receipt Date: 20110601
  Transmission Date: 20111010
  Serious: Yes (Other)
  Sender: FDA-Public Use
  Company Number: US-ROCHE-781782

PATIENT

DRUGS (1)
  1. ACTEMRA [Suspect]
     Route: 042

REACTIONS (3)
  - NERVOUS SYSTEM DISORDER [None]
  - CSF TEST ABNORMAL [None]
  - ENCEPHALOPATHY [None]
